FAERS Safety Report 9918131 (Version 2)
Quarter: 2014Q1

REPORT INFORMATION
  Report Type: Spontaneous
  Country: US (occurrence: US)
  Receive Date: 20140223
  Receipt Date: 20140223
  Transmission Date: 20141002
  Serious: Yes (Other)
  Sender: FDA-Public Use
  Company Number: US-GE HEALTHCARE MEDICAL DIAGNOSTICS-OSCN-PR-0805S-0291

PATIENT
  Sex: Female

DRUGS (6)
  1. OMNISCAN [Suspect]
     Indication: PRODUCT USED FOR UNKNOWN INDICATION
     Dates: start: 20050916, end: 20050916
  2. OMNISCAN [Suspect]
     Dates: start: 20050330, end: 20050330
  3. OMNISCAN [Suspect]
     Dates: start: 20050915, end: 20050915
  4. OMNISCAN [Suspect]
     Dates: start: 20050915, end: 20050915
  5. OMNISCAN [Suspect]
     Dates: start: 20050916, end: 20050916
  6. OMNISCAN [Suspect]
     Dates: start: 20060125, end: 20060125

REACTIONS (1)
  - Nephrogenic systemic fibrosis [Not Recovered/Not Resolved]
